FAERS Safety Report 25912984 (Version 1)
Quarter: 2025Q4

REPORT INFORMATION
  Report Type: Spontaneous
  Country: US (occurrence: US)
  Receive Date: 20251013
  Receipt Date: 20251013
  Transmission Date: 20260119
  Serious: Yes (Other)
  Sender: CATALYST PHARMA
  Company Number: US-CATALYST PHARMACEUTICALS-US-CATA-25-01519

PATIENT
  Age: 11 Year
  Sex: Male
  Weight: 40.816 kg

DRUGS (12)
  1. AGAMREE [Suspect]
     Active Substance: VAMOROLONE
     Indication: Duchenne muscular dystrophy
     Dosage: 5.2 ML DAILY
     Route: 048
     Dates: start: 20240611
  2. AGAMREE [Suspect]
     Active Substance: VAMOROLONE
     Dosage: 6.1 ML DAILY
     Route: 048
     Dates: start: 20250813
  3. DUVYZAT [Suspect]
     Active Substance: GIVINOSTAT
     Indication: Product used for unknown indication
     Dosage: UNK, UNK
     Route: 065
     Dates: end: 20250929
  4. VYVANSE [Concomitant]
     Active Substance: LISDEXAMFETAMINE DIMESYLATE
     Indication: Attention deficit hyperactivity disorder
     Dosage: 20 MG DAILY
     Route: 048
  5. LISINOPRIL [Concomitant]
     Active Substance: LISINOPRIL
     Indication: Hypertension
     Dosage: 5 MG DAILY
     Route: 048
  6. PEPCID COMPLETE [Concomitant]
     Active Substance: CALCIUM CARBONATE\FAMOTIDINE\MAGNESIUM HYDROXIDE
     Indication: Gastrointestinal disorder prophylaxis
     Dosage: 10-800-165 MG DAILY
     Route: 048
  7. DIETARY SUPPLEMENT [Concomitant]
     Active Substance: DIETARY SUPPLEMENT
     Indication: Supplementation therapy
     Dosage: 200 MG DAILY
     Route: 048
  8. BLADDERWRACK-BURDOCK ROOT [Concomitant]
     Indication: Supplementation therapy
     Dosage: ONE CAPSULE DAILY
     Route: 065
  9. MEGA COQ10 [Concomitant]
     Indication: Hypovitaminosis
     Dosage: 15 ML DAILY
     Route: 048
  10. OMEGA 3 GUMMMY FISH [Concomitant]
     Indication: Hypovitaminosis
     Dosage: ONE GUMMY DAILY
     Route: 065
  11. VITAMIN D3 [Concomitant]
     Active Substance: CHOLECALCIFEROL
     Indication: Hypovitaminosis
     Dosage: ONE FAST DISSOLVE  TABLET DAILY
     Route: 048
  12. QUERCETIN [Concomitant]
     Active Substance: QUERCETIN
     Indication: Hypovitaminosis
     Dosage: 500 MG DAILY
     Route: 048

REACTIONS (3)
  - General physical health deterioration [Not Recovered/Not Resolved]
  - Fall [Not Recovered/Not Resolved]
  - Weight increased [Not Recovered/Not Resolved]

NARRATIVE: CASE EVENT DATE: 20250101
